FAERS Safety Report 13891756 (Version 1)
Quarter: 2017Q3

REPORT INFORMATION
  Report Type: Report from Study
  Country: US (occurrence: US)
  Receive Date: 20170822
  Receipt Date: 20170822
  Transmission Date: 20171127
  Serious: Yes (Death, Hospitalization, Other)
  Sender: FDA-Public Use
  Company Number: US-PFIZER INC-2017328195

PATIENT
  Age: 58 Year
  Sex: Male

DRUGS (2)
  1. SUTENT [Suspect]
     Active Substance: SUNITINIB MALATE
     Indication: GASTROINTESTINAL STROMAL TUMOUR
     Dosage: 50 MG, DAILY
     Dates: start: 20170719
  2. SUTENT [Suspect]
     Active Substance: SUNITINIB MALATE
     Indication: HEPATOCELLULAR CARCINOMA
     Dosage: 50 MG, DAILY
     Route: 048
     Dates: start: 20170719, end: 20170814

REACTIONS (5)
  - Haemoptysis [Fatal]
  - Pruritus [Unknown]
  - Musculoskeletal stiffness [Unknown]
  - Pulmonary embolism [Fatal]
  - Haematemesis [Fatal]

NARRATIVE: CASE EVENT DATE: 201707
